FAERS Safety Report 12602469 (Version 1)
Quarter: 2016Q3

REPORT INFORMATION
  Report Type: Spontaneous
  Country: US (occurrence: None)
  Receive Date: 20160727
  Receipt Date: 20160727
  Transmission Date: 20161109
  Serious: Yes (Hospitalization)
  Sender: FDA-Public Use
  Company Number: None

PATIENT
  Age: 54 Year
  Sex: Male

DRUGS (7)
  1. PIPERACILLIN/TAZOBACTAM [Suspect]
     Active Substance: PIPERACILLIN SODIUM\TAZOBACTAM SODIUM
     Indication: INFECTION
     Route: 042
     Dates: start: 20160216, end: 20160216
  2. ACYCLOVIR. [Concomitant]
     Active Substance: ACYCLOVIR
  3. POTASSIUM CHLORIDE. [Concomitant]
     Active Substance: POTASSIUM CHLORIDE
  4. VANCOMYCIN [Concomitant]
     Active Substance: VANCOMYCIN
  5. HYCROCORTISONE [Concomitant]
  6. VORICONAZOLE. [Concomitant]
     Active Substance: VORICONAZOLE
  7. MAGNESIUM SULFATE. [Concomitant]
     Active Substance: MAGNESIUM SULFATE

REACTIONS (3)
  - Drug hypersensitivity [None]
  - Anaphylactic reaction [None]
  - Respiratory distress [None]

NARRATIVE: CASE EVENT DATE: 20160216
